FAERS Safety Report 17706248 (Version 1)
Quarter: 2020Q2

REPORT INFORMATION
  Report Type: Spontaneous
  Country: DE (occurrence: DE)
  Receive Date: 20200424
  Receipt Date: 20200424
  Transmission Date: 20200714
  Serious: Yes (Hospitalization)
  Sender: FDA-Public Use
  Company Number: DE-PFIZER INC-2020162626

PATIENT
  Age: 63 Year
  Sex: Male

DRUGS (8)
  1. PANTOPRAZOL [PANTOPRAZOLE] [Concomitant]
     Active Substance: PANTOPRAZOLE
     Dosage: UNK, 1X/DAY (40 MG, 1-0-0-0)
     Route: 048
  2. IBUPROFEN. [Suspect]
     Active Substance: IBUPROFEN
     Dosage: UNK, 4X/DAY
     Route: 048
  3. CLONIDIN-RATIOPHARM [Concomitant]
     Dosage: 150 ?G, 0-0-0.5-0
     Route: 048
  4. PREDNISOLON [PREDNISOLONE] [Suspect]
     Active Substance: PREDNISOLONE
     Dosage: 7.5 MG, 1X/DAY
     Route: 048
  5. NALOXONE HYDROCHLORIDE/OXYCODONE HYDROCHLORIDE [Concomitant]
     Active Substance: NALOXONE HYDROCHLORIDE\OXYCODONE HYDROCHLORIDE
     Dosage: 10/20 MG, 2-1-2-0
     Route: 048
  6. CANDESARTAN. [Concomitant]
     Active Substance: CANDESARTAN
     Dosage: 8 MG, 0-0-1-0
     Route: 048
  7. SALOFALK [MESALAZINE] [Concomitant]
     Active Substance: MESALAMINE
     Dosage: 1000 MG, 0-1-0-0
  8. PREGABALIN. [Concomitant]
     Active Substance: PREGABALIN
     Dosage: 200 MG, 1-1-1-0
     Route: 048

REACTIONS (7)
  - Vomiting [Unknown]
  - Decreased appetite [Unknown]
  - Nausea [Unknown]
  - Fatigue [Unknown]
  - Tachycardia [Unknown]
  - General physical health deterioration [Unknown]
  - Haematemesis [Unknown]
